FAERS Safety Report 20826251 (Version 1)
Quarter: 2022Q2

REPORT INFORMATION
  Report Type: Report from Study
  Country: US (occurrence: US)
  Receive Date: 20220513
  Receipt Date: 20220513
  Transmission Date: 20220721
  Serious: Yes (Hospitalization)
  Sender: FDA-Public Use
  Company Number: US-SERVIER-S22003917

PATIENT

DRUGS (11)
  1. PEGASPARGASE [Suspect]
     Active Substance: PEGASPARGASE
     Indication: Acute lymphocytic leukaemia
     Dosage: 4425 IU, ON D4, D15, D43
     Route: 042
     Dates: start: 20211102
  2. RUXOLITINIB [Suspect]
     Active Substance: RUXOLITINIB
     Indication: Acute lymphocytic leukaemia
     Dosage: 90 MG, BID, D1 TO D14 AND D29 TO D42
     Route: 048
     Dates: start: 20211019
  3. DOXORUBICIN [Suspect]
     Active Substance: DOXORUBICIN
     Indication: Acute lymphocytic leukaemia
     Dosage: 46 MG, ON D1, D8, D15
     Route: 042
     Dates: start: 20220315, end: 20220329
  4. DEXAMETHASONE [Concomitant]
     Active Substance: DEXAMETHASONE
     Indication: Acute lymphocytic leukaemia
     Dosage: 9 MG, BID
     Route: 048
     Dates: start: 20220315, end: 20220329
  5. CYCLOPHOSPHAMIDE [Concomitant]
     Active Substance: CYCLOPHOSPHAMIDE
     Indication: Acute lymphocytic leukaemia
     Dosage: 1770 MG, ON D1
     Route: 042
     Dates: start: 20211019
  6. CYTARABINE [Concomitant]
     Active Substance: CYTARABINE
     Indication: Acute lymphocytic leukaemia
     Dosage: 133 MG, ON D1 TO D4, D8 TO D11, D29 TO D32, D36 TO D39
     Route: 042
     Dates: start: 20211019
  7. METHOTREXATE [Concomitant]
     Active Substance: METHOTREXATE
     Indication: Acute lymphocytic leukaemia
     Dosage: 15 MG, ON D1, D8, D15 AND D22
     Route: 037
     Dates: start: 20211019
  8. METHOTREXATE [Concomitant]
     Active Substance: METHOTREXATE
     Indication: Acute lymphocytic leukaemia
     Dosage: 8900 MG, QD
     Route: 042
     Dates: start: 20220105
  9. MERCAPTOPURINE [Concomitant]
     Active Substance: MERCAPTOPURINE
     Indication: Acute lymphocytic leukaemia
     Dosage: 300 MG, EVERY 1 WEEK, ON D1 TO D14, D29 TO D42
     Route: 048
     Dates: start: 20211019
  10. LEUCOVORIN [Concomitant]
     Active Substance: LEUCOVORIN
     Indication: Acute lymphocytic leukaemia
     Dosage: 27 MG
     Route: 048
     Dates: start: 20220107
  11. VINCRISTINE [Concomitant]
     Active Substance: VINCRISTINE
     Indication: Acute lymphocytic leukaemia
     Dosage: 2 MG, ON D15, D22, D43, D50
     Route: 042
     Dates: start: 20211102, end: 20220329

REACTIONS (2)
  - Febrile neutropenia [Recovered/Resolved]
  - Bacteraemia [Recovering/Resolving]

NARRATIVE: CASE EVENT DATE: 20220329
